FAERS Safety Report 11375038 (Version 1)
Quarter: 2015Q3

REPORT INFORMATION
  Report Type: Spontaneous
  Country: US (occurrence: None)
  Receive Date: 20150812
  Receipt Date: 20150812
  Transmission Date: 20151125
  Serious: No
  Sender: FDA-Public Use
  Company Number: None

PATIENT
  Sex: Female

DRUGS (2)
  1. LEVOTHYROXIN [Concomitant]
     Active Substance: LEVOTHYROXINE
  2. INLYTA [Suspect]
     Active Substance: AXITINIB
     Indication: RENAL CANCER
     Route: 048
     Dates: start: 20150720

REACTIONS (1)
  - Nausea [None]
